FAERS Safety Report 19263174 (Version 2)
Quarter: 2021Q3

REPORT INFORMATION
  Report Type: Spontaneous
  Country: DE (occurrence: DE)
  Receive Date: 20210517
  Receipt Date: 20210813
  Transmission Date: 20211014
  Serious: No
  Sender: FDA-Public Use
  Company Number: DE-ALKEM LABORATORIES LIMITED-DE-ALKEM-2021-01032

PATIENT
  Sex: Male

DRUGS (5)
  1. PREGABALIN. [Suspect]
     Active Substance: PREGABALIN
     Dosage: 2 DOSAGE FORM, QD
     Route: 065
  2. CARBAMAZEPIN NEURAXPHARM [Suspect]
     Active Substance: CARBAMAZEPINE
     Indication: SEIZURE
     Dosage: UNK
     Route: 065
  3. LAMOTRIGIN ARISTO [Concomitant]
     Active Substance: LAMOTRIGINE
     Indication: PRODUCT USED FOR UNKNOWN INDICATION
     Dosage: 4 DOSAGE FORM, QD
     Route: 065
  4. PREGABALIN. [Suspect]
     Active Substance: PREGABALIN
     Indication: PRODUCT USED FOR UNKNOWN INDICATION
     Dosage: 2 DOSAGE FORM, QD
     Route: 065
  5. DULOXETIN ZENTIVA [Concomitant]
     Indication: PRODUCT USED FOR UNKNOWN INDICATION
     Dosage: 2 DOSAGE FORM, QD
     Route: 065

REACTIONS (14)
  - Speech disorder [Unknown]
  - Tremor [Unknown]
  - Disturbance in attention [Unknown]
  - Discomfort [Unknown]
  - Chest discomfort [Unknown]
  - Burning sensation [Unknown]
  - Gait inability [Unknown]
  - Headache [Unknown]
  - Skin burning sensation [Unknown]
  - Memory impairment [Unknown]
  - Restlessness [Unknown]
  - Disorientation [Unknown]
  - Insomnia [Unknown]
  - Balance disorder [Unknown]
